FAERS Safety Report 13153869 (Version 4)
Quarter: 2017Q1

REPORT INFORMATION
  Report Type: Report from Study
  Country: DE (occurrence: DE)
  Receive Date: 20170126
  Receipt Date: 20170224
  Transmission Date: 20170428
  Serious: Yes (Hospitalization)
  Sender: FDA-Public Use
  Company Number: DE-BEH-2017077373

PATIENT
  Age: 75 Year
  Sex: Female
  Weight: 67 kg

DRUGS (12)
  1. HUMALOG MIX [Concomitant]
     Active Substance: INSULIN LISPRO
  2. RAMIPRIL. [Concomitant]
     Active Substance: RAMIPRIL
  3. METOPROLOL. [Concomitant]
     Active Substance: METOPROLOL
  4. LANTUS [Concomitant]
     Active Substance: INSULIN GLARGINE
  5. TOREM                              /01036501/ [Concomitant]
     Active Substance: TORSEMIDE
  6. XARELTO [Concomitant]
     Active Substance: RIVAROXABAN
     Route: 048
  7. ACICLOVIR [Concomitant]
     Active Substance: ACYCLOVIR
     Indication: PROPHYLAXIS
     Dosage: UNK
     Route: 065
     Dates: start: 201701
  8. PRIVIGEN [Suspect]
     Active Substance: HUMAN IMMUNOGLOBULIN G
     Indication: CHRONIC LYMPHOCYTIC LEUKAEMIA
     Dosage: 20 G, TOT
     Route: 042
     Dates: start: 20161220, end: 20161220
  9. ANTICOAG [Concomitant]
     Active Substance: UNSPECIFIED INGREDIENT
     Indication: ATRIAL FIBRILLATION
  10. PRIVIGEN [Suspect]
     Active Substance: HUMAN IMMUNOGLOBULIN G
     Indication: SECONDARY IMMUNODEFICIENCY
  11. DIGITOXIN [Concomitant]
     Active Substance: DIGITOXIN
  12. IBRUTINIB [Concomitant]
     Active Substance: IBRUTINIB
     Indication: CHRONIC LYMPHOCYTIC LEUKAEMIA
     Dosage: 140 MG, QD
     Route: 065
     Dates: start: 201605

REACTIONS (9)
  - Bacterial infection [Recovered/Resolved]
  - Psychomotor retardation [Unknown]
  - Abdominal mass [Unknown]
  - Pyrexia [Recovered/Resolved]
  - Memory impairment [Unknown]
  - Hepatic cyst [Unknown]
  - Hepatic congestion [Not Recovered/Not Resolved]
  - Dementia [Unknown]
  - Confusional state [Unknown]

NARRATIVE: CASE EVENT DATE: 20170103
